FAERS Safety Report 5014221-0 (Version None)
Quarter: 2006Q2

REPORT INFORMATION
  Report Type: 
  Country: None (occurrence: None)
  Receive Date: 20060414
  Receipt Date: 20060216
  Transmission Date: 20061013
  Serious: No
  Sender: FDA-Public Use
  Company Number: 2006SP000818

PATIENT
  Age: 47 Year
  Sex: Female
  Weight: 92.5338 kg

DRUGS (9)
  1. LUNESTA [Suspect]
     Indication: INSOMNIA
     Dosage: 2 MG;HS;ORAL
     Route: 048
     Dates: start: 20060214
  2. PIOGLITAZONE HCL [Concomitant]
  3. LANTUS [Concomitant]
  4. PLAQUENIL [Concomitant]
  5. COZAAR [Concomitant]
  6. ANTIDEPRESSANTS [Concomitant]
  7. SIMVASTATIN [Concomitant]
  8. AMBIEN [Concomitant]
  9. METFORMIN [Concomitant]

REACTIONS (1)
  - INSOMNIA [None]
